FAERS Safety Report 10013792 (Version 2)
Quarter: 2014Q2

REPORT INFORMATION
  Report Type: Spontaneous
  Country: US (occurrence: US)
  Receive Date: 20140316
  Receipt Date: 20140429
  Transmission Date: 20141212
  Serious: Yes (Other)
  Sender: FDA-Public Use
  Company Number: US-BAYER-2014-039613

PATIENT
  Age: 37 Year
  Sex: Female
  Weight: 92.97 kg

DRUGS (10)
  1. MIRENA [Suspect]
     Indication: CONTRACEPTION
     Dosage: 20 MCG/24HR, CONT
     Route: 015
     Dates: start: 20091028, end: 20110422
  2. FLEXERIL [Concomitant]
  3. VOLTAREN [Concomitant]
  4. DIAZEPAM [Concomitant]
  5. PERCOCET [Concomitant]
  6. TRAZODONE [Concomitant]
  7. CYMBALTA [Concomitant]
  8. ALLEGRA [Concomitant]
  9. ALBUTEROL [Concomitant]
  10. CRYSELLE-28 [Concomitant]

REACTIONS (4)
  - Uterine perforation [None]
  - Injury [None]
  - Pain [None]
  - Emotional distress [None]
